FAERS Safety Report 24121693 (Version 3)
Quarter: 2024Q3

REPORT INFORMATION
  Report Type: Spontaneous
  Country: GR (occurrence: GR)
  Receive Date: 20240722
  Receipt Date: 20240917
  Transmission Date: 20241016
  Serious: No
  Sender: PFIZER
  Company Number: GR-PFIZER INC-PV202400093104

PATIENT
  Age: 14 Year
  Sex: Male
  Weight: 47 kg

DRUGS (2)
  1. GENOTROPIN [Suspect]
     Active Substance: SOMATROPIN
     Indication: Body height decreased
     Dosage: 1.2MG X 5 DAYS, 1MG X 1 DAY AND 1 DAY OFF
     Route: 058
     Dates: start: 200406
  2. GENOTROPIN [Suspect]
     Active Substance: SOMATROPIN
     Dosage: 1.2MG X 5 DAYS, 1MG X 1 DAY AND 1 DAY OFF
     Route: 058

REACTIONS (2)
  - Product preparation error [Unknown]
  - Liquid product physical issue [Unknown]

NARRATIVE: CASE EVENT DATE: 20240714
